FAERS Safety Report 8431734-X (Version None)
Quarter: 2012Q2

REPORT INFORMATION
  Report Type: 
  Country: None (occurrence: None)
  Receive Date: 20120613
  Receipt Date: 20120605
  Transmission Date: 20120825
  Serious: Yes (Hospitalization)
  Sender: FDA-Public Use
  Company Number: US-BAYER-2012-042383

PATIENT
  Age: 22 Year
  Sex: Female
  Weight: 59 kg

DRUGS (9)
  1. AZITHROMYCIN [Concomitant]
  2. CLONAZEPAM [Concomitant]
  3. YAZ [Suspect]
  4. PREDNISONE TAB [Concomitant]
  5. BISOPROLOL FUMARATE [Concomitant]
  6. R-TANNA [CHLORPHENAMINE TANNATE,PHENYLEPHRINE TANNATE] [Concomitant]
  7. DILAUDID [Concomitant]
  8. LEXAPRO [Concomitant]
  9. ATIVAN [Concomitant]

REACTIONS (7)
  - HEPATIC HAEMORRHAGE [None]
  - HEPATIC RUPTURE [None]
  - GALLBLADDER DISORDER [None]
  - INJURY [None]
  - KELOID SCAR [None]
  - PAIN [None]
  - HEPATIC MASS [None]
